FAERS Safety Report 15191995 (Version 1)
Quarter: 2018Q3

REPORT INFORMATION
  Report Type: Spontaneous
  Country: FR (occurrence: FR)
  Receive Date: 20180724
  Receipt Date: 20180724
  Transmission Date: 20181010
  Serious: Yes (Other)
  Sender: FDA-Public Use
  Company Number: FR-ALLERGAN-1836233US

PATIENT
  Age: 70 Year
  Sex: Male

DRUGS (1)
  1. PYLERA [Suspect]
     Active Substance: BISMUTH SUBCITRATE POTASSIUM\METRONIDAZOLE\TETRACYCLINE HYDROCHLORIDE
     Indication: HELICOBACTER GASTRITIS
     Dosage: UNK UNK, UNKNOWN
     Route: 048
     Dates: start: 20180710, end: 20180717

REACTIONS (2)
  - Lymphoma [Unknown]
  - Dysphagia [Unknown]
